FAERS Safety Report 12221212 (Version 1)
Quarter: 2016Q1

REPORT INFORMATION
  Report Type: Spontaneous
  Country: US (occurrence: US)
  Receive Date: 20160330
  Receipt Date: 20160330
  Transmission Date: 20160526
  Serious: Yes (Other)
  Sender: FDA-Public Use
  Company Number: US-LPDUSPRD-20160262

PATIENT
  Age: 25 Year
  Sex: Female

DRUGS (2)
  1. CYANOCOBALAMIN INJECTION, USP (0031-25) [Suspect]
     Active Substance: CYANOCOBALAMIN
     Dosage: DOSE NOT PROVIDED
     Route: 065
  2. ANTI-DEPRESSANT, UNSPECIFIED [Concomitant]
     Dosage: DOSE NOT PROVIDED
     Route: 065

REACTIONS (2)
  - Mania [Unknown]
  - Psychotic disorder [Unknown]
